FAERS Safety Report 9455526 (Version 1)
Quarter: 2013Q3

REPORT INFORMATION
  Report Type: Spontaneous
  Country: GB (occurrence: GB)
  Receive Date: 20130813
  Receipt Date: 20130813
  Transmission Date: 20140515
  Serious: Yes (Life-Threatening, Hospitalization, Disabling, Other)
  Sender: FDA-Public Use
  Company Number: GB-PFIZER INC-2013232568

PATIENT
  Age: 66 Year
  Sex: Female
  Weight: 52 kg

DRUGS (6)
  1. GABAPENTIN [Suspect]
     Indication: FIBROMYALGIA
     Dosage: 100 MG, 3X/DAY
     Route: 048
     Dates: start: 20120901
  2. STRONTIUM RANELATE [Suspect]
     Indication: OSTEOARTHRITIS
     Dosage: 2G AT NIGHT
     Route: 048
     Dates: start: 20120901, end: 20130730
  3. TRAMADOL [Concomitant]
     Dosage: UNK
  4. AMITRIPTYLINE [Concomitant]
     Dosage: UNK
  5. OMEPRAZOLE [Concomitant]
     Dosage: UNK
  6. CALCICHEW-D3 [Concomitant]
     Dosage: UNK

REACTIONS (5)
  - Purpura [Not Recovered/Not Resolved]
  - Vasculitic rash [Not Recovered/Not Resolved]
  - Zygomycosis [Unknown]
  - Ocular vascular disorder [Unknown]
  - Autoimmune disorder [Unknown]
